FAERS Safety Report 4834047-8 (Version None)
Quarter: 2005Q4

REPORT INFORMATION
  Report Type: 
  Country: None (occurrence: None)
  Receive Date: 20051118
  Receipt Date: 20051118
  Transmission Date: 20060501
  Serious: Yes (Other)
  Sender: FDA-Public Use
  Company Number: None

PATIENT
  Sex: Male
  Weight: 113.3 kg

DRUGS (15)
  1. CYCLOPHOSPHAMIDE [Suspect]
     Indication: ACUTE LYMPHOCYTIC LEUKAEMIA
     Dosage: SEE IMAGE
     Route: 042
     Dates: start: 20051105
  2. ALLOPURINOL [Suspect]
     Dosage: SEE IMAGE
     Route: 048
  3. DAUNORUBICIN [Suspect]
     Dosage: SEE IMAGE
     Route: 042
  4. VINCRISTINE [Suspect]
     Dosage: SEE IMAGE
     Route: 042
     Dates: end: 20051112
  5. DEXAMETHASONE [Suspect]
     Dosage: SEE IMAGE
     Route: 048
  6. G-CSF [Suspect]
     Dosage: SEE IMAGE
     Route: 058
  7. METHOTREXATE [Suspect]
     Dosage: SEE IMAGE
     Route: 039
  8. CYCLOPHOSPHAMIDE [Suspect]
     Dosage: SEE IMAGE
     Route: 042
  9. CYTARABINE [Suspect]
     Dosage: SEE IMAGE
     Route: 042
  10. L-ASPARAGINASE [Suspect]
     Dosage: SEE IMAGE
     Route: 058
  11. DEXAMETHASONE [Suspect]
     Dosage: SEE IMAGE
     Route: 047
  12. G-CSF [Suspect]
     Dosage: SEE IMAGE
     Route: 058
  13. COTRIMOXAZOLE DS [Suspect]
     Dosage: SEE IMAGE
     Route: 048
  14. HYDROCORTISONE [Suspect]
     Dosage: SEE IMAGE
     Route: 038
  15. L-ASPARAGINASE [Suspect]
     Dosage: SEE IMAGE
     Route: 058

REACTIONS (2)
  - BILIRUBIN CONJUGATED INCREASED [None]
  - BLOOD BILIRUBIN INCREASED [None]
